FAERS Safety Report 7001738-2 (Version None)
Quarter: 2010Q3

REPORT INFORMATION
  Report Type: 
  Country: None (occurrence: None)
  Receive Date: 20100920
  Receipt Date: 20100910
  Transmission Date: 20110219
  Serious: Yes (Other)
  Sender: FDA-Public Use
  Company Number: GXBR2010US01576

PATIENT
  Sex: Male

DRUGS (2)
  1. RIBAVIRIN CAPSULES (NGX) [Suspect]
     Dosage: MATERNAL DOSE: UNKNOWN
     Route: 064
  2. PLAN B [Suspect]
     Dosage: MATERNAL DOSE: UNKNOWN
     Route: 064

REACTIONS (2)
  - AGGRESSION [None]
  - DRUG EXPOSURE DURING PREGNANCY [None]
